FAERS Safety Report 20774955 (Version 1)
Quarter: 2022Q2

REPORT INFORMATION
  Report Type: Spontaneous
  Country: CN (occurrence: CN)
  Receive Date: 20220502
  Receipt Date: 20220502
  Transmission Date: 20220721
  Serious: Yes (Other)
  Sender: FDA-Public Use
  Company Number: CN-ELI_LILLY_AND_COMPANY-CN202204000473

PATIENT
  Sex: Male
  Weight: 70 kg

DRUGS (6)
  1. CIALIS [Suspect]
     Active Substance: TADALAFIL
     Indication: Pulmonary hypertension
     Dosage: UNK UNK, UNKNOWN
     Route: 048
     Dates: start: 2009
  2. CIALIS [Suspect]
     Active Substance: TADALAFIL
     Dosage: 0.5 DOSAGE FORM, DAILY (HALF TABLET OF 20 MG)
     Route: 048
     Dates: start: 2013
  3. CIALIS [Suspect]
     Active Substance: TADALAFIL
     Dosage: 0.5 DOSAGE FORM, DAILY (HALF TABLET OF 20 MG)
     Route: 048
  4. FUROSEMIDE [Concomitant]
     Active Substance: FUROSEMIDE
     Indication: Product used for unknown indication
  5. RIVAROXABAN [Concomitant]
     Active Substance: RIVAROXABAN
     Indication: Product used for unknown indication
  6. METOPROLOL SUCCINATE [Concomitant]
     Active Substance: METOPROLOL SUCCINATE
     Indication: Product used for unknown indication

REACTIONS (4)
  - Cardiac failure [Unknown]
  - Flushing [Unknown]
  - Wrong technique in product usage process [Unknown]
  - Off label use [Unknown]
